FAERS Safety Report 6530318-8 (Version None)
Quarter: 2010Q1

REPORT INFORMATION
  Report Type: 
  Country: None (occurrence: None)
  Receive Date: 20100107
  Receipt Date: 20100105
  Transmission Date: 20100710
  Serious: Yes (Death)
  Sender: FDA-Public Use
  Company Number: CA-B.I. PHARMACEUTICALS,INC./RIDGEFIELD-2009-CN-00720CN

PATIENT
  Sex: Male

DRUGS (3)
  1. CATAPRES [Suspect]
     Indication: PAIN MANAGEMENT
     Route: 037
     Dates: start: 20090815
  2. HYDROMORPHONE [Concomitant]
     Route: 037
  3. BUPIVACAINE [Concomitant]
     Route: 037

REACTIONS (1)
  - PENIS CARCINOMA [None]
